FAERS Safety Report 7249529-1 (Version None)
Quarter: 2011Q1

REPORT INFORMATION
  Report Type: 
  Country: None (occurrence: None)
  Receive Date: 20110128
  Receipt Date: 20101123
  Transmission Date: 20110831
  Serious: Yes (Hospitalization)
  Sender: FDA-Public Use
  Company Number: US-BAYER-201038257NA

PATIENT
  Sex: Female
  Weight: 91 kg

DRUGS (22)
  1. YASMIN [Suspect]
     Indication: ACNE
     Dosage: UNK
     Dates: start: 20050101, end: 20090101
  2. LEVAQUIN [Concomitant]
  3. MOTRIN [Concomitant]
  4. OCELLA [Suspect]
     Indication: CONTRACEPTION
  5. PRILOSEC [Concomitant]
     Indication: GASTROOESOPHAGEAL REFLUX DISEASE
  6. DEMEROL [Concomitant]
  7. PHENERGAN [Concomitant]
  8. YASMIN [Suspect]
     Indication: CONTRACEPTION
  9. HEPARIN [Concomitant]
  10. YAZ [Suspect]
     Indication: ACNE
  11. POTASSIUM [Concomitant]
  12. BLOOD PRESSURE MEDICATION (NOS) [Concomitant]
  13. OCELLA [Suspect]
     Indication: ACNE
     Dosage: UNK
     Dates: start: 20050101, end: 20090101
  14. ADVIL LIQUI-GELS [Concomitant]
  15. LORTAB [Concomitant]
  16. I.V. SOLUTIONS [Concomitant]
  17. WELCHOL [Concomitant]
     Indication: GASTROINTESTINAL DISORDER
     Dosage: UNK
  18. MULTI-VITAMIN [Concomitant]
     Indication: VITAMIN SUPPLEMENTATION
  19. DARVOCET [Concomitant]
     Dosage: UNK UNK, PRN
  20. DIURETICS [Concomitant]
  21. ANTIBIOTICS [Concomitant]
  22. VICODIN [Concomitant]

REACTIONS (4)
  - CHOLELITHIASIS [None]
  - ABDOMINAL PAIN UPPER [None]
  - CHOLECYSTITIS CHRONIC [None]
  - BILE DUCT STONE [None]
